FAERS Safety Report 11593365 (Version 1)
Quarter: 2015Q4

REPORT INFORMATION
  Report Type: Spontaneous
  Country: US (occurrence: None)
  Receive Date: 20151002
  Receipt Date: 20151002
  Transmission Date: 20160304
  Serious: Yes (Life-Threatening, Hospitalization)
  Sender: FDA-Public Use
  Company Number: None

PATIENT
  Age: 57 Year
  Sex: Male
  Weight: 53.1 kg

DRUGS (1)
  1. BENZTROPINE [Suspect]
     Active Substance: BENZTROPINE
     Indication: EXTRAPYRAMIDAL DISORDER
     Route: 048
     Dates: start: 20150616, end: 20150906

REACTIONS (15)
  - Confusional state [None]
  - Poor quality sleep [None]
  - Pneumonia [None]
  - Troponin increased [None]
  - Urinary tract infection [None]
  - Ileus [None]
  - Intestinal obstruction [None]
  - Urinary retention [None]
  - Pollakiuria [None]
  - Abdominal distension [None]
  - Decreased appetite [None]
  - Hyponatraemia [None]
  - Generalised tonic-clonic seizure [None]
  - Disorientation [None]
  - Hypokalaemia [None]

NARRATIVE: CASE EVENT DATE: 20150902
